FAERS Safety Report 7471303-1 (Version None)
Quarter: 2011Q2

REPORT INFORMATION
  Report Type: 
  Country: None (occurrence: None)
  Receive Date: 20110510
  Receipt Date: 20110505
  Transmission Date: 20111010
  Serious: Yes (Other)
  Sender: FDA-Public Use
  Company Number: US-ABBOTT-11P-163-0723655-00

PATIENT
  Sex: Male
  Weight: 67.192 kg

DRUGS (4)
  1. HUMIRA [Suspect]
     Indication: CROHN'S DISEASE
     Dates: start: 20101201
  2. IRON [Concomitant]
     Indication: MINERAL SUPPLEMENTATION
  3. UNKNOWN VITAMINS [Concomitant]
     Indication: VITAMIN SUPPLEMENTATION
  4. CALCIUM [Concomitant]
     Indication: MINERAL SUPPLEMENTATION

REACTIONS (7)
  - HYPOTENSION [None]
  - NAIL GROWTH ABNORMAL [None]
  - ASTHENIA [None]
  - DRUG INEFFECTIVE [None]
  - ABASIA [None]
  - BLOOD POTASSIUM DECREASED [None]
  - WEIGHT DECREASED [None]
